FAERS Safety Report 6436705-0 (Version None)
Quarter: 2009Q4

REPORT INFORMATION
  Report Type: 
  Country: None (occurrence: None)
  Receive Date: 20091110
  Receipt Date: 20091110
  Transmission Date: 20100525
  Serious: Yes (Hospitalization, Disabling, Other)
  Sender: FDA-Public Use
  Company Number: None

PATIENT
  Age: 23 Year
  Sex: Female
  Weight: 63.5036 kg

DRUGS (2)
  1. YAZ [Suspect]
     Indication: ACNE
     Dosage: 1 SID PO
     Route: 048
     Dates: start: 20080701, end: 20090928
  2. YAZ [Suspect]
     Indication: CONTRACEPTION
     Dosage: 1 SID PO
     Route: 048
     Dates: start: 20080701, end: 20090928

REACTIONS (3)
  - CONFUSIONAL STATE [None]
  - GALLBLADDER NON-FUNCTIONING [None]
  - LETHARGY [None]
